FAERS Safety Report 15367951 (Version 5)
Quarter: 2019Q2

REPORT INFORMATION
  Report Type: Spontaneous
  Country: US (occurrence: US)
  Receive Date: 20180910
  Receipt Date: 20190405
  Transmission Date: 20190711
  Serious: No
  Sender: FDA-Public Use
  Company Number: US-SA-2018SA253480

PATIENT
  Age: 36 Year
  Sex: Male

DRUGS (12)
  1. BACTRIM [Concomitant]
     Active Substance: SULFAMETHOXAZOLE\TRIMETHOPRIM
  2. DOXYCYCLINE. [Concomitant]
     Active Substance: DOXYCYCLINE
  3. IBUPROFEN. [Concomitant]
     Active Substance: IBUPROFEN
  4. POLYETHYLENE [Concomitant]
     Active Substance: HIGH DENSITY POLYETHYLENE
  5. TAMSULOSIN [Concomitant]
     Active Substance: TAMSULOSIN
  6. LACTULOSE. [Concomitant]
     Active Substance: LACTULOSE
  7. AUBAGIO [Suspect]
     Active Substance: TERIFLUNOMIDE
     Dosage: 14 MG, QD
  8. SULFAMETHOXAZOL [SULFAMETHOXAZOLE] [Concomitant]
     Active Substance: SULFAMETHOXAZOLE
  9. TRAZODONE HYDROCHLORIDE. [Concomitant]
     Active Substance: TRAZODONE HYDROCHLORIDE
  10. ZOLPIDEM [Concomitant]
     Active Substance: ZOLPIDEM\ZOLPIDEM TARTRATE
     Dosage: 10 MG
  11. PHENADOZ [Concomitant]
     Active Substance: PROMETHAZINE HYDROCHLORIDE
  12. AUBAGIO [Suspect]
     Active Substance: TERIFLUNOMIDE
     Indication: PRODUCT USED FOR UNKNOWN INDICATION
     Dosage: 1 DF, QD
     Route: 048
     Dates: start: 20171207

REACTIONS (3)
  - Arthralgia [Unknown]
  - Fall [Unknown]
  - Insomnia [Not Recovered/Not Resolved]
